FAERS Safety Report 17516199 (Version 1)
Quarter: 2020Q1

REPORT INFORMATION
  Report Type: Spontaneous
  Country: PT (occurrence: PT)
  Receive Date: 20200309
  Receipt Date: 20200309
  Transmission Date: 20200409
  Serious: Yes (Other)
  Sender: FDA-Public Use
  Company Number: PT-PFIZER INC-2020099188

PATIENT
  Age: 57 Year
  Sex: Female

DRUGS (1)
  1. XELJANZ [Suspect]
     Active Substance: TOFACITINIB CITRATE
     Indication: RHEUMATOID ARTHRITIS
     Dosage: UNK
     Dates: start: 20180521, end: 20190606

REACTIONS (3)
  - Stress cardiomyopathy [Recovered/Resolved]
  - Chest pain [Recovered/Resolved]
  - Cardiomyopathy acute [Recovered/Resolved]

NARRATIVE: CASE EVENT DATE: 20190606
